FAERS Safety Report 13760061 (Version 2)
Quarter: 2018Q2

REPORT INFORMATION
  Report Type: Spontaneous
  Country: DK (occurrence: DK)
  Receive Date: 20170717
  Receipt Date: 20180603
  Transmission Date: 20180711
  Serious: Yes (Other)
  Sender: FDA-Public Use
  Company Number: PHHY2017DK103383

PATIENT
  Sex: Female

DRUGS (4)
  1. ACLASTA [Suspect]
     Active Substance: ZOLEDRONIC ACID
     Indication: OSTEOPOROSIS
     Route: 042
     Dates: start: 201104
  2. FOSAMAX [Suspect]
     Active Substance: ALENDRONATE SODIUM
     Indication: OSTEOPOROSIS
     Dosage: DOSIS: DOSIS EJ KENDT, STYRKE: STYRKE EJ KENDT
     Route: 048
     Dates: start: 1998, end: 2008
  3. ACLASTA [Suspect]
     Active Substance: ZOLEDRONIC ACID
     Dosage: UNK
     Route: 042
     Dates: start: 201305
  4. ACLASTA [Suspect]
     Active Substance: ZOLEDRONIC ACID
     Dosage: DOSIS: DOSIS EJ KENDT, STYRKE: STYRKE EJ KENDT
     Route: 042
     Dates: start: 20110506, end: 20130507

REACTIONS (5)
  - Osteonecrosis of jaw [Recovered/Resolved]
  - Osteomyelitis [Unknown]
  - Pain in jaw [Unknown]
  - Gingivitis [Unknown]
  - Mastication disorder [Unknown]

NARRATIVE: CASE EVENT DATE: 2015
